FAERS Safety Report 6429633-8 (Version None)
Quarter: 2009Q4

REPORT INFORMATION
  Report Type: 
  Country: None (occurrence: None)
  Receive Date: 20091103
  Receipt Date: 20091019
  Transmission Date: 20100525
  Serious: Yes (Hospitalization)
  Sender: FDA-Public Use
  Company Number: 02100-JPN-05-0567

PATIENT
  Age: 77 Year
  Sex: Female
  Weight: 49 kg

DRUGS (8)
  1. PLETAL [Suspect]
     Indication: CEREBRAL INFARCTION
     Dosage: 100 MG, BID ORAL
     Route: 048
     Dates: start: 20050708, end: 20051222
  2. LOXONIN (LOXOPROFEN SODIUM) [Concomitant]
  3. MUCOSTA (REBAMIPIDE) [Concomitant]
  4. CANDESARTAN CILEXETIL [Concomitant]
  5. PURSENNID (SENNOSIDE) [Concomitant]
  6. DEPAS (ETIZOLAM) [Concomitant]
  7. MS (CATAPLASMATA 3-14) [Concomitant]
  8. SANTE 40 (UNSPECIFIED OPTHALMIC SOLUTION) [Concomitant]

REACTIONS (3)
  - CHEST PAIN [None]
  - ELECTROCARDIOGRAM ABNORMAL [None]
  - ELECTROCARDIOGRAM T WAVE AMPLITUDE DECREASED [None]
